FAERS Safety Report 14139948 (Version 1)
Quarter: 2017Q4

REPORT INFORMATION
  Report Type: Spontaneous
  Country: US (occurrence: US)
  Receive Date: 20171030
  Receipt Date: 20171030
  Transmission Date: 20180321
  Serious: No
  Sender: FDA-Public Use
  Company Number: US-UNICHEM LABORATORIES LIMITED-UCM201708-000211

PATIENT
  Sex: Female
  Weight: 81.72 kg

DRUGS (7)
  1. NINZARIC [Concomitant]
     Indication: BLOOD PRESSURE MEASUREMENT
     Dates: start: 20170522, end: 20170622
  2. NINZARIC [Concomitant]
     Dates: start: 20170622, end: 20170722
  3. MEMANTINE HCL 10 MG TABLETS [Suspect]
     Active Substance: MEMANTINE HYDROCHLORIDE
     Indication: AMNESIA
     Dates: start: 20170710, end: 20170711
  4. MEMANTINE HCL 10 MG TABLETS [Suspect]
     Active Substance: MEMANTINE HYDROCHLORIDE
     Indication: COGNITIVE DISORDER
     Dates: start: 20170722
  5. ATORVASTATIN [Concomitant]
     Active Substance: ATORVASTATIN
     Indication: BLOOD CHOLESTEROL
  6. LISINOPRIL TABLETS [Concomitant]
     Active Substance: LISINOPRIL
     Indication: BLOOD PRESSURE MEASUREMENT
  7. CEREFOLIN NAC [Concomitant]
     Indication: VITAMIN SUPPLEMENTATION

REACTIONS (1)
  - Drug ineffective [Unknown]
